FAERS Safety Report 8621831-8 (Version None)
Quarter: 2012Q3

REPORT INFORMATION
  Report Type: 
  Country: None (occurrence: None)
  Receive Date: 20120822
  Receipt Date: 20120822
  Transmission Date: 20120928
  Serious: No
  Sender: FDA-Public Use
  Company Number: None

PATIENT
  Age: 51 Year
  Sex: Male
  Weight: 81 kg

DRUGS (1)
  1. XYLOCAINE W/ EPINEPHRENE [Suspect]

REACTIONS (1)
  - BLOOD DISORDER [None]
